FAERS Safety Report 10154846 (Version 2)
Quarter: 2014Q2

REPORT INFORMATION
  Report Type: Spontaneous
  Country: JP (occurrence: JP)
  Receive Date: 20140506
  Receipt Date: 20140605
  Transmission Date: 20141212
  Serious: Yes (Other)
  Sender: FDA-Public Use
  Company Number: JP-SA-2014SA055908

PATIENT
  Sex: 0

DRUGS (2)
  1. BCG FOR IMMUNOTHERAPY [Suspect]
     Indication: BLADDER CANCER
     Route: 043
  2. BCG FOR IMMUNOTHERAPY [Suspect]
     Indication: BLADDER CANCER
     Route: 065

REACTIONS (7)
  - Uveitis [Unknown]
  - Liver disorder [Unknown]
  - Arthritis reactive [Unknown]
  - Conjunctivitis [Unknown]
  - Haematuria [Unknown]
  - Dysuria [Unknown]
  - Pyrexia [Unknown]
